FAERS Safety Report 14528735 (Version 2)
Quarter: 2018Q4

REPORT INFORMATION
  Report Type: Spontaneous
  Country: GB (occurrence: GB)
  Receive Date: 20180214
  Receipt Date: 20181015
  Transmission Date: 20190204
  Serious: Yes (Other)
  Sender: FDA-Public Use
  Company Number: GB-SUN PHARMACEUTICAL INDUSTRIES LTD-2018RR-163229

PATIENT
  Age: 18 Year
  Sex: Female

DRUGS (9)
  1. BRENTUXIMAB VEDOTIN [Suspect]
     Active Substance: BRENTUXIMAB VEDOTIN
     Indication: HODGKIN^S DISEASE
     Dosage: UNK ()
     Route: 065
  2. DEXAMETHASONE. [Suspect]
     Active Substance: DEXAMETHASONE
     Indication: HODGKIN^S DISEASE
     Dosage: UNK ()
     Route: 065
  3. CISPLATIN. [Suspect]
     Active Substance: CISPLATIN
     Indication: HODGKIN^S DISEASE
     Dosage: UNK ()
     Route: 065
  4. GEMCITABINE [Suspect]
     Active Substance: GEMCITABINE\GEMCITABINE HYDROCHLORIDE
     Indication: HODGKIN^S DISEASE
     Dosage: UNK
     Route: 065
  5. VINBLASTINE [Suspect]
     Active Substance: VINBLASTINE
     Indication: HODGKIN^S DISEASE
     Dosage: UNK ()
     Route: 065
  6. CYTARABINE. [Suspect]
     Active Substance: CYTARABINE
     Indication: HODGKIN^S DISEASE
     Dosage: UNK ()
     Route: 065
  7. DACARBAZINE. [Suspect]
     Active Substance: DACARBAZINE
     Indication: HODGKIN^S DISEASE
     Dosage: UNK ()
     Route: 065
  8. BLEOMYCIN [Suspect]
     Active Substance: BLEOMYCIN SULFATE
     Indication: HODGKIN^S DISEASE
     Dosage: UNK ()
     Route: 065
  9. DOXORUBICIN [Suspect]
     Active Substance: DOXORUBICIN
     Indication: HODGKIN^S DISEASE
     Dosage: UNK ()
     Route: 065

REACTIONS (4)
  - Hodgkin^s disease refractory [Recovered/Resolved]
  - Malignant neoplasm progression [Recovered/Resolved]
  - Disease progression [Recovered/Resolved]
  - Hodgkin^s disease [Recovered/Resolved]
